FAERS Safety Report 9817998 (Version 1)
Quarter: 2014Q1

REPORT INFORMATION
  Report Type: Report from Study
  Country: US (occurrence: US)
  Receive Date: 20140115
  Receipt Date: 20140115
  Transmission Date: 20141002
  Serious: Yes (Death)
  Sender: FDA-Public Use
  Company Number: US-ROCHE-1333335

PATIENT
  Age: 77 Year
  Sex: Male

DRUGS (2)
  1. AVASTIN [Suspect]
     Indication: PROSTATE CANCER
     Dosage: 14/JUN/2012
     Route: 042
     Dates: start: 20120531
  2. TEMSIROLIMUS [Concomitant]
     Route: 042

REACTIONS (5)
  - Death [Fatal]
  - Asthenia [Unknown]
  - Poor venous access [Unknown]
  - Injection site extravasation [Unknown]
  - Off label use [Unknown]
